FAERS Safety Report 14901908 (Version 2)
Quarter: 2019Q1

REPORT INFORMATION
  Report Type: Other
  Country: None (occurrence: FR)
  Receive Date: 20180516
  Receipt Date: 20190131
  Transmission Date: 20190417
  Serious: Yes (Death)
  Sender: FDA-Public Use
  Company Number: FR-ALSI-201800338

PATIENT
  Age: 19 Year
  Sex: Male

DRUGS (1)
  1. NITROUS OXIDE. [Suspect]
     Active Substance: NITROUS OXIDE
     Indication: SUBSTANCE USE
     Route: 055
     Dates: start: 20180511, end: 20180511

REACTIONS (3)
  - Cardiac arrest [Fatal]
  - Euphoric mood [Fatal]
  - Substance use [Fatal]
